FAERS Safety Report 11628149 (Version 1)
Quarter: 2015Q4

REPORT INFORMATION
  Report Type: Spontaneous
  Country: US (occurrence: None)
  Receive Date: 20151013
  Receipt Date: 20151013
  Transmission Date: 20160304
  Serious: Yes (Disabling)
  Sender: FDA-Public Use
  Company Number: None

PATIENT
  Age: 67 Year
  Sex: Female
  Weight: 43.09 kg

DRUGS (12)
  1. LEVOTHROXINE [Concomitant]
  2. TYLENOL [Concomitant]
     Active Substance: ACETAMINOPHEN
  3. ONDANSETRON [Concomitant]
     Active Substance: ONDANSETRON
  4. VITAMIN D [Concomitant]
     Active Substance: CHOLECALCIFEROL
  5. ELAVIL [Concomitant]
     Active Substance: AMITRIPTYLINE HYDROCHLORIDE
  6. BIOTIN [Concomitant]
     Active Substance: BIOTIN
  7. MS CONTIN [Concomitant]
     Active Substance: MORPHINE SULFATE
  8. HARVONI [Suspect]
     Active Substance: LEDIPASVIR\SOFOSBUVIR
     Indication: HEPATITIS C
     Dosage: 1 PILL PER DAY ONCE DAILY TAKEN BY MOUTH
     Route: 048
  9. CREON [Concomitant]
     Active Substance: PANCRELIPASE AMYLASE\PANCRELIPASE LIPASE\PANCRELIPASE PROTEASE
  10. OXYCODONE [Concomitant]
     Active Substance: OXYCODONE
  11. FAMOTADINE [Concomitant]
  12. ATIVAN [Concomitant]
     Active Substance: LORAZEPAM

REACTIONS (7)
  - Pain [None]
  - Pain in extremity [None]
  - Sleep disorder [None]
  - Asthenia [None]
  - Pancreatitis [None]
  - Drug interaction [None]
  - Drug ineffective [None]

NARRATIVE: CASE EVENT DATE: 20150821
